FAERS Safety Report 25628047 (Version 2)
Quarter: 2025Q3

REPORT INFORMATION
  Report Type: Spontaneous
  Country: US (occurrence: US)
  Receive Date: 20250731
  Receipt Date: 20250808
  Transmission Date: 20251021
  Serious: No
  Sender: PHARMING GROUP
  Company Number: US-PHARMING-PHAUS2025001082

PATIENT

DRUGS (1)
  1. LENIOLISIB [Suspect]
     Active Substance: LENIOLISIB
     Indication: Activated PI3 kinase delta syndrome

REACTIONS (1)
  - Wrong technique in product usage process [Unknown]
